FAERS Safety Report 6217637-X (Version None)
Quarter: 2009Q2

REPORT INFORMATION
  Report Type: 
  Country: None (occurrence: None)
  Receive Date: 20090608
  Receipt Date: 20090511
  Transmission Date: 20091009
  Serious: Yes (Other)
  Sender: FDA-Public Use
  Company Number: A0783506A

PATIENT
  Age: 19 Year
  Sex: Female

DRUGS (6)
  1. BUPROPION HCL [Suspect]
     Indication: DEPRESSION
     Dosage: 150MG PER DAY
     Route: 048
     Dates: start: 20050101, end: 20090301
  2. FLORINEF [Concomitant]
  3. ELAVIL [Concomitant]
  4. MIDODRINE [Concomitant]
  5. ATENOLOL [Concomitant]
  6. YAZ [Concomitant]

REACTIONS (2)
  - MAJOR DEPRESSION [None]
  - SYNCOPE [None]
